FAERS Safety Report 25799114 (Version 3)
Quarter: 2025Q4

REPORT INFORMATION
  Report Type: Spontaneous
  Country: CA (occurrence: CA)
  Receive Date: 20250913
  Receipt Date: 20251003
  Transmission Date: 20260117
  Serious: Yes (Hospitalization, Other)
  Sender: CELLTRION
  Company Number: CA-PFIZER INC-202500111953

PATIENT

DRUGS (7)
  1. INFLECTRA [Suspect]
     Active Substance: INFLIXIMAB-DYYB
     Indication: Crohn^s disease
     Dosage: 5 MG/KG, EVERY 6 WEEKS
     Route: 042
     Dates: start: 20220603
  2. INFLECTRA [Suspect]
     Active Substance: INFLIXIMAB-DYYB
     Dosage: 5 MG/KG, EVERY 6 WEEKS
     Route: 042
     Dates: start: 20250416
  3. INFLECTRA [Suspect]
     Active Substance: INFLIXIMAB-DYYB
     Dosage: 560 MG, EVERY 6 WEEKS
     Route: 042
     Dates: start: 20250528
  4. INFLECTRA [Suspect]
     Active Substance: INFLIXIMAB-DYYB
     Dosage: 560 MG, AFTER 8 WEEKS AND 2 DAYS (5 MG/KG, EVERY 6 WEEKS)
     Route: 042
     Dates: start: 20250725
  5. INFLECTRA [Suspect]
     Active Substance: INFLIXIMAB-DYYB
     Dosage: 565 MG, 7 WEEKS (5MG/KG,EVERY 6 WEEKS)
     Route: 042
     Dates: start: 20250912
  6. PURINETHOL [Concomitant]
     Active Substance: MERCAPTOPURINE
     Dosage: 50 MG, UNKNOWN
  7. PURINETHOL [Concomitant]
     Active Substance: MERCAPTOPURINE
     Dosage: UNK

REACTIONS (3)
  - Intestinal obstruction [Recovered/Resolved]
  - Laryngitis [Recovered/Resolved]
  - Condition aggravated [Recovering/Resolving]

NARRATIVE: CASE EVENT DATE: 20250528
